FAERS Safety Report 17482099 (Version 1)
Quarter: 2020Q1

REPORT INFORMATION
  Report Type: Spontaneous
  Country: US (occurrence: US)
  Receive Date: 20200302
  Receipt Date: 20200302
  Transmission Date: 20200409
  Serious: Yes (Other)
  Sender: FDA-Public Use
  Company Number: US-GLAXOSMITHKLINE-US2020AMR033796

PATIENT
  Sex: Male
  Weight: 117.93 kg

DRUGS (12)
  1. ISOTRETINOIN. [Suspect]
     Active Substance: ISOTRETINOIN
     Indication: ANTIINFLAMMATORY THERAPY
     Dosage: UNK
     Route: 048
  2. SORIATANE [Suspect]
     Active Substance: ACITRETIN
     Indication: WARTY DYSKERATOMA
     Dosage: 10 MG, QOD
     Route: 048
  3. ACYCLOVIR. [Suspect]
     Active Substance: ACYCLOVIR
     Indication: HERPES SIMPLEX
     Dosage: 1 DF, BID ( (INCREASED 10 MG EVERDAY)
     Route: 048
  4. ACYCLOVIR. [Suspect]
     Active Substance: ACYCLOVIR
     Indication: WARTY DYSKERATOMA
  5. HIBICLENS [Suspect]
     Active Substance: CHLORHEXIDINE GLUCONATE
     Indication: ANTIINFLAMMATORY THERAPY
     Dosage: UNK
     Route: 065
  6. NORCO [Concomitant]
     Active Substance: ACETAMINOPHEN\HYDROCODONE BITARTRATE
     Indication: PAIN
     Dosage: 1 DF, BID AS NEEDED
     Route: 048
  7. ACYCLOVIR. [Suspect]
     Active Substance: ACYCLOVIR
     Indication: BLISTER
  8. ALBUTEROL SULFATE. [Concomitant]
     Active Substance: ALBUTEROL SULFATE
     Indication: WHEEZING
     Dosage: 1 PUFF(S) EVERY 4 HOURS AS NEEDED
     Route: 048
  9. ACYCLOVIR. [Suspect]
     Active Substance: ACYCLOVIR
     Indication: KERATOSIS FOLLICULAR
  10. SALICYLIC ACID OINTMENT [Suspect]
     Active Substance: SALICYLIC ACID
     Indication: ANTIINFLAMMATORY THERAPY
     Dosage: UNK
     Route: 065
  11. SERTRALINE [Concomitant]
     Active Substance: SERTRALINE HYDROCHLORIDE
     Indication: PRODUCT USED FOR UNKNOWN INDICATION
     Dosage: 1 DF, QD
     Route: 048
  12. HYDROCHLOROTHIAZIDE. [Concomitant]
     Active Substance: HYDROCHLOROTHIAZIDE
     Indication: PRODUCT USED FOR UNKNOWN INDICATION
     Dosage: 1 DF, QD
     Route: 048

REACTIONS (26)
  - Staphylococcal infection [Unknown]
  - Hypertension [Unknown]
  - Groin pain [Unknown]
  - Depression [Unknown]
  - Neck pain [Recovered/Resolved]
  - Condition aggravated [Recovered/Resolved]
  - Fungal infection [Unknown]
  - Skin cancer [Unknown]
  - Obesity [Unknown]
  - Hyperkeratosis [Unknown]
  - Skin disorder [Unknown]
  - Musculoskeletal stiffness [Unknown]
  - Drug ineffective [Unknown]
  - Hallucination [Unknown]
  - Genital lesion [Unknown]
  - Herpes simplex [Unknown]
  - Arthralgia [Unknown]
  - Ear pain [Unknown]
  - Seborrhoeic dermatitis [Unknown]
  - Product dose omission [Unknown]
  - Keratosis follicular [Unknown]
  - Pruritus [Unknown]
  - Pain [Unknown]
  - Parosmia [Unknown]
  - Skin lesion [Unknown]
  - Scar [Recovered/Resolved]
